FAERS Safety Report 5331402-7 (Version None)
Quarter: 2007Q2

REPORT INFORMATION
  Report Type: 
  Country: None (occurrence: None)
  Receive Date: 20070516
  Receipt Date: 20070501
  Transmission Date: 20071010
  Serious: Yes (Other)
  Sender: FDA-Public Use
  Company Number: PAR_01545_2007

PATIENT
  Age: 68 Year
  Sex: Female
  Weight: 58.9676 kg

DRUGS (2)
  1. CLONAZEPAM [Suspect]
     Indication: INSOMNIA
     Dosage: 0.5 MG QD ORAL
     Route: 048
     Dates: start: 20070401, end: 20070427
  2. CLONAZEPAM [Suspect]
     Indication: INSOMNIA
     Dosage: 1 MG ORAL
     Route: 048
     Dates: start: 20070401, end: 20070427

REACTIONS (2)
  - FALL [None]
  - LOSS OF CONSCIOUSNESS [None]
